FAERS Safety Report 14163560 (Version 2)
Quarter: 2017Q4

REPORT INFORMATION
  Report Type: Spontaneous
  Country: US (occurrence: US)
  Receive Date: 20171107
  Receipt Date: 20171116
  Transmission Date: 20180321
  Serious: Yes (Hospitalization, Other)
  Sender: FDA-Public Use
  Company Number: US-AUROBINDO-AUR-APL-2017-43222

PATIENT

DRUGS (4)
  1. ARIPIPRAZOLE. [Suspect]
     Active Substance: ARIPIPRAZOLE
     Dosage: 5 MG
     Route: 065
  2. ARIPIPRAZOLE. [Suspect]
     Active Substance: ARIPIPRAZOLE
     Indication: PRODUCT USED FOR UNKNOWN INDICATION
     Dosage: 2.5 MG, FOR 3 DAYS
     Route: 065
  3. CLONIDINE. [Concomitant]
     Active Substance: CLONIDINE
     Indication: PRODUCT USED FOR UNKNOWN INDICATION
     Dosage: UNK
     Route: 065
  4. DEXAMPHETAMINE [Concomitant]
     Active Substance: AMPHETAMINE
     Indication: PRODUCT USED FOR UNKNOWN INDICATION

REACTIONS (14)
  - Drooling [Recovered/Resolved]
  - Protrusion tongue [Recovered/Resolved]
  - Speech disorder [Recovered/Resolved]
  - Back pain [Unknown]
  - Sluggishness [Recovered/Resolved]
  - Extrapyramidal disorder [Unknown]
  - Mental status changes [Recovered/Resolved]
  - Musculoskeletal stiffness [Unknown]
  - Disturbance in attention [Unknown]
  - Neck pain [Unknown]
  - Gait disturbance [Recovered/Resolved]
  - Depressed level of consciousness [Recovered/Resolved]
  - Disorientation [Unknown]
  - Tremor [Unknown]
